FAERS Safety Report 19057575 (Version 6)
Quarter: 2024Q2

REPORT INFORMATION
  Report Type: Report from Study
  Country: CA (occurrence: CA)
  Receive Date: 20210324
  Receipt Date: 20240612
  Transmission Date: 20240715
  Serious: Yes (Other)
  Sender: FDA-Public Use
  Company Number: CA-TAKEDA-2021TUS017072

PATIENT
  Age: 45 Year
  Sex: Female

DRUGS (9)
  1. VEDOLIZUMAB [Suspect]
     Active Substance: VEDOLIZUMAB
     Indication: Colitis ulcerative
     Dosage: 300 MILLIGRAM
     Route: 042
     Dates: start: 20201008
  2. VEDOLIZUMAB [Suspect]
     Active Substance: VEDOLIZUMAB
     Dosage: 300 MILLIGRAM
     Route: 042
  3. VEDOLIZUMAB [Suspect]
     Active Substance: VEDOLIZUMAB
     Dosage: 300 MILLIGRAM, Q4WEEKS
     Route: 042
     Dates: start: 20221025
  4. VEDOLIZUMAB [Suspect]
     Active Substance: VEDOLIZUMAB
     Dosage: 300 MILLIGRAM, Q4WEEKS
     Route: 042
  5. PANTOPRAZOLE SODIUM [Suspect]
     Active Substance: PANTOPRAZOLE SODIUM
     Indication: Product used for unknown indication
     Dosage: 40 MILLIGRAM
     Route: 048
     Dates: start: 20190408
  6. PENTASA [Concomitant]
     Active Substance: MESALAMINE
     Dosage: 5 MILLIGRAM
     Route: 048
     Dates: start: 20151008
  7. EFFEXOR [Concomitant]
     Active Substance: VENLAFAXINE HYDROCHLORIDE
     Dosage: 187.5 MILLIGRAM
     Route: 048
     Dates: start: 20151008
  8. ARIPIPRAZOLE [Concomitant]
     Active Substance: ARIPIPRAZOLE
     Dosage: UNK
  9. IRON [Concomitant]
     Active Substance: IRON
     Dosage: UNK

REACTIONS (6)
  - Colitis ulcerative [Unknown]
  - Haemorrhage [Recovered/Resolved]
  - Gastric ulcer [Unknown]
  - Drug ineffective [Unknown]
  - Off label use [Unknown]
  - Illness [Unknown]

NARRATIVE: CASE EVENT DATE: 20221025
